FAERS Safety Report 5855773-8 (Version None)
Quarter: 2008Q3

REPORT INFORMATION
  Report Type: 
  Country: None (occurrence: None)
  Receive Date: 20080825
  Receipt Date: 20080805
  Transmission Date: 20090109
  Serious: No
  Sender: FDA-Public Use
  Company Number: US-BAYER-200829520NA

PATIENT
  Age: 51 Year
  Sex: Male

DRUGS (6)
  1. LEVITRA [Suspect]
     Indication: ERECTILE DYSFUNCTION
     Dosage: UNIT DOSE: 20 MG
     Route: 048
     Dates: start: 20060101
  2. AZOR [Concomitant]
  3. LEVEMIR [Concomitant]
  4. ACTOPLUS MET [Concomitant]
  5. VICODIN [Concomitant]
  6. SOMA [Concomitant]

REACTIONS (2)
  - ERECTILE DYSFUNCTION [None]
  - FLUSHING [None]
